FAERS Safety Report 8327795-9 (Version None)
Quarter: 2012Q2

REPORT INFORMATION
  Report Type: 
  Country: None (occurrence: None)
  Receive Date: 20120502
  Receipt Date: 20120427
  Transmission Date: 20120825
  Serious: No
  Sender: FDA-Public Use
  Company Number: US-PFIZER INC-2012105228

PATIENT
  Age: 53 Year
  Sex: Female
  Weight: 71.655 kg

DRUGS (1)
  1. ARTHROTEC [Suspect]
     Indication: FIBROMYALGIA
     Dosage: UNK
     Route: 048
     Dates: start: 20111002, end: 20111005

REACTIONS (3)
  - SWELLING FACE [None]
  - HYPERSENSITIVITY [None]
  - VITAMIN D DEFICIENCY [None]
